FAERS Safety Report 24660873 (Version 1)
Quarter: 2024Q4

REPORT INFORMATION
  Report Type: Spontaneous
  Country: US (occurrence: US)
  Receive Date: 20241125
  Receipt Date: 20241125
  Transmission Date: 20250115
  Serious: No
  Sender: AVADEL CNS PHARMACEUTICALS, LLC
  Company Number: US-AVADEL CNS PHARMACEUTICALS, LLC-2024AVA02021

PATIENT
  Age: 35 Year
  Sex: Male
  Weight: 77.6 kg

DRUGS (20)
  1. LUMRYZ [Suspect]
     Active Substance: SODIUM OXYBATE
     Indication: Narcolepsy
     Dosage: 4.5 G, ONCE NIGHTLY AT BEDTIME
     Route: 048
     Dates: start: 2024, end: 20241016
  2. LUMRYZ [Suspect]
     Active Substance: SODIUM OXYBATE
     Indication: Cataplexy
  3. ALBUTEROL SULFATE [Concomitant]
     Active Substance: ALBUTEROL SULFATE
     Dosage: 2-4 PUFFS, EVERY 4 HOURS
  4. ATENOLOL [Concomitant]
     Active Substance: ATENOLOL
     Dosage: 25 MG, 1X/DAY AND INCREASE BY 25 MG EACH WEEK UP TO 25 MG 3X/DAY OVER 3 WEEKS
     Route: 048
     Dates: start: 20190121
  5. ASTEPRO [Concomitant]
     Active Substance: AZELASTINE HYDROCHLORIDE
     Dosage: 2 SPRAYS IN EACH NOSTRIL, DAILY
     Dates: start: 20210611
  6. WELCHOL [Concomitant]
     Active Substance: COLESEVELAM HYDROCHLORIDE
     Dosage: 625 MG, 1X/DAY
     Route: 048
  7. KAPIDEX [Concomitant]
     Active Substance: DEXLANSOPRAZOLE
     Dosage: UNK MG
     Route: 048
  8. ADDERALL [Concomitant]
     Active Substance: AMPHETAMINE ASPARTATE\AMPHETAMINE SULFATE\DEXTROAMPHETAMINE SACCHARATE\DEXTROAMPHETAMINE SULFATE
     Dosage: 1 TABLET (15 MG), 2X/DAY
     Route: 048
     Dates: start: 20240808, end: 20240904
  9. LOMOTIL [Concomitant]
     Active Substance: ATROPINE SULFATE\DIPHENOXYLATE HYDROCHLORIDE
     Dosage: 1 TABLETS, 4X/DAY AS NEEDED
     Route: 048
  10. RELPAX [Concomitant]
     Active Substance: ELETRIPTAN HYDROBROMIDE
     Dosage: 40 MG, AT ONSET. MAY REPEAT ONE TIME AFTER 2 HOURS IF NEEDED. LIMIT 9 DAYS/MONTH
     Route: 048
     Dates: start: 20240614
  11. AJOVY [Concomitant]
     Active Substance: FREMANEZUMAB-VFRM
     Dosage: INJECT 1.5 ML, EVERY MONTH
     Route: 058
     Dates: start: 20240826
  12. BAQSIMI [Concomitant]
     Active Substance: GLUCAGON
     Dosage: UNK
     Dates: start: 20210204
  13. EPINEPHRINE [Concomitant]
     Active Substance: EPINEPHRINE
     Route: 030
  14. ATROVENT [Concomitant]
     Active Substance: IPRATROPIUM BROMIDE
     Dosage: 2 SPRAYS IN BOTH NOSTRILS, 3X/DAY
     Dates: start: 20221107
  15. KETOROLAC [Concomitant]
     Active Substance: KETOROLAC TROMETHAMINE
     Dosage: INJECT 30 MG, EVERY 8 HOURS AS NEEDED
     Route: 030
     Dates: start: 20240125
  16. VYVANSE [Concomitant]
     Active Substance: LISDEXAMFETAMINE DIMESYLATE
     Dosage: 1 CAPSULE (30 MG), EVERY MORNING
     Route: 048
     Dates: start: 20240808, end: 20240904
  17. PHENERGAN [Concomitant]
     Active Substance: PROMETHAZINE HYDROCHLORIDE
     Dosage: 1 TABLET (25 MG), EVERY 6 HOURS AS NEEDED
     Route: 048
     Dates: start: 20180104
  18. ZOFRAN [Concomitant]
     Active Substance: ONDANSETRON HYDROCHLORIDE
     Dosage: 1 TABLET (4 MG), EVERY 8 HOURS AS NEEDED
     Route: 048
     Dates: start: 20240125
  19. IMITREX [Concomitant]
     Active Substance: SUMATRIPTAN SUCCINATE
     Dosage: 6 MG, ONCE AS NEEDED FOR UP TO 1 DOSE. MAY REPEAT DOSE ONCE AFTER 1 HR. NO MORE THAN 2 DOSES/24 HRS
     Route: 058
     Dates: start: 20211203
  20. UBRELVY [Concomitant]
     Active Substance: UBROGEPANT
     Dosage: 100 MG, AS NEEDED. LIMIT TO NO MORE THAN 200 MG IN 24 HOURS
     Route: 048

REACTIONS (1)
  - Terminal insomnia [Unknown]

NARRATIVE: CASE EVENT DATE: 20241016
